FAERS Safety Report 8619313-2 (Version None)
Quarter: 2012Q3

REPORT INFORMATION
  Report Type: 
  Country: None (occurrence: None)
  Receive Date: 20120824
  Receipt Date: 20120817
  Transmission Date: 20120928
  Serious: Yes (Other)
  Sender: FDA-Public Use
  Company Number: US-ELI_LILLY_AND_COMPANY-US201203008090

PATIENT
  Age: 52 Year
  Sex: Male
  Weight: 90.7 kg

DRUGS (7)
  1. ASPIRIN [Concomitant]
     Dosage: 325 MG, UNK
  2. VICODIN [Concomitant]
     Dosage: UNK, PRN
  3. LIPITOR [Concomitant]
     Dosage: 80 MG, QD
  4. EFFIENT [Suspect]
     Indication: STENT PLACEMENT
     Dosage: UNK, UNKNOWN
     Route: 048
     Dates: start: 20110711, end: 20120207
  5. RANEXA [Concomitant]
     Dosage: 500 MG, BID
  6. ASPIRIN [Concomitant]
     Dosage: 81 MG, UNK
  7. METOPROLOL TARTRATE [Concomitant]
     Dosage: 100 MG, QD

REACTIONS (2)
  - GASTRIC ULCER [None]
  - GASTROINTESTINAL HAEMORRHAGE [None]
